FAERS Safety Report 9294934 (Version 1)
Quarter: 2013Q1

REPORT INFORMATION
  Report Type: Spontaneous
  Country: US (occurrence: None)
  Receive Date: 20121227
  Receipt Date: 20121227
  Transmission Date: 20140127
  Serious: Yes (Hospitalization)
  Sender: FDA-Public Use
  Company Number: PHEH2012US019509

PATIENT
  Age: 30 Year
  Sex: Female
  Weight: 70 kg

DRUGS (2)
  1. EXJADE [Suspect]
     Indication: IRON OVERLOAD
     Route: 048
     Dates: start: 20120924, end: 20121001
  2. HYDREA (HYDROXYCARBAMIDE) [Concomitant]

REACTIONS (2)
  - Gastrointestinal haemorrhage [None]
  - Haemoglobin decreased [None]
